FAERS Safety Report 15423157 (Version 1)
Quarter: 2018Q3

REPORT INFORMATION
  Report Type: Spontaneous
  Country: ES (occurrence: ES)
  Receive Date: 20180925
  Receipt Date: 20180925
  Transmission Date: 20181010
  Serious: Yes (Death, Hospitalization)
  Sender: FDA-Public Use
  Company Number: ES-ASTRAZENECA-2018SF19005

PATIENT
  Age: 80 Year
  Sex: Male

DRUGS (11)
  1. SIMVASTATIN. [Suspect]
     Active Substance: SIMVASTATIN
     Dosage: 10.0MG UNKNOWN
     Route: 048
     Dates: start: 20180718, end: 20180718
  2. AMLODIPINE [Suspect]
     Active Substance: AMLODIPINE BESYLATE
     Dosage: 5.0MG UNKNOWN
     Route: 048
     Dates: start: 20180718, end: 20180718
  3. QUETIAPINE. [Suspect]
     Active Substance: QUETIAPINE
     Dosage: 100.0MG ONCE/SINGLE ADMINISTRATION
     Route: 048
     Dates: start: 20180718, end: 20180718
  4. MIRTAZAPINA [Suspect]
     Active Substance: MIRTAZAPINE
     Dosage: 15.0MG UNKNOWN
     Route: 048
     Dates: start: 20180718, end: 20180718
  5. SINEMET [Suspect]
     Active Substance: CARBIDOPA\LEVODOPA
     Route: 048
     Dates: start: 20180718, end: 20180718
  6. PLAVIX [Suspect]
     Active Substance: CLOPIDOGREL BISULFATE
     Route: 048
     Dates: start: 20180718, end: 20180718
  7. PREGABALIN. [Interacting]
     Active Substance: PREGABALIN
     Dosage: 300.0MG ONCE/SINGLE ADMINISTRATION
     Route: 048
     Dates: start: 20180718, end: 20180718
  8. ORFIDAL [Interacting]
     Active Substance: LORAZEPAM
     Route: 048
     Dates: start: 20180718, end: 20180718
  9. SERTRALINE [Interacting]
     Active Substance: SERTRALINE HYDROCHLORIDE
     Dosage: 50.0MG ONCE/SINGLE ADMINISTRATION
     Route: 048
     Dates: start: 20180718, end: 20180718
  10. DUPHALAC [Suspect]
     Active Substance: LACTULOSE
     Route: 048
     Dates: start: 20180718, end: 20180718
  11. CROMATONBIC [Suspect]
     Active Substance: VITAMINS
     Route: 048
     Dates: start: 20180718, end: 20180718

REACTIONS (2)
  - Hypotension [Fatal]
  - Wrong patient received medication [Fatal]

NARRATIVE: CASE EVENT DATE: 20180718
